FAERS Safety Report 24691768 (Version 1)
Quarter: 2024Q4

REPORT INFORMATION
  Report Type: Spontaneous
  Country: GB (occurrence: GB)
  Receive Date: 20241203
  Receipt Date: 20241203
  Transmission Date: 20250115
  Serious: Yes (Other)
  Sender: ROCHE
  Company Number: GB-ROCHE-10000139620

PATIENT
  Age: 4 Year

DRUGS (1)
  1. EMICIZUMAB [Suspect]
     Active Substance: EMICIZUMAB
     Indication: Factor VIII deficiency
     Route: 065

REACTIONS (6)
  - Contusion [Unknown]
  - Tongue haemorrhage [Unknown]
  - Contusion [Unknown]
  - Weight bearing difficulty [Unknown]
  - Head injury [Unknown]
  - Abscess limb [Unknown]
